FAERS Safety Report 6082194-8 (Version None)
Quarter: 2009Q1

REPORT INFORMATION
  Report Type: 
  Country: None (occurrence: None)
  Receive Date: 20090218
  Receipt Date: 20090212
  Transmission Date: 20090719
  Serious: Yes (Hospitalization)
  Sender: FDA-Public Use
  Company Number: B0530370A

PATIENT
  Age: 48 Year
  Sex: Male

DRUGS (5)
  1. SERETIDE [Suspect]
     Indication: ASTHMA
     Dosage: 2PUFF THREE TIMES PER DAY
     Route: 055
     Dates: start: 20080401
  2. VENTOLIN [Suspect]
     Indication: ASTHMA
     Dosage: 200MCG AS REQUIRED
     Route: 055
  3. LANSOPRAZOLE [Suspect]
     Indication: ILL-DEFINED DISORDER
     Dosage: 30MG PER DAY
     Route: 048
     Dates: end: 20090101
  4. OMEPRAZOLE [Suspect]
     Indication: ILL-DEFINED DISORDER
     Route: 065
     Dates: start: 20090101
  5. UNKNOWN DRUG [Concomitant]
     Indication: ASTHMA
     Dosage: 2MCG TWICE PER DAY
     Route: 048

REACTIONS (5)
  - ASTHMA [None]
  - COUGH [None]
  - DYSPNOEA [None]
  - LOWER RESPIRATORY TRACT INFECTION [None]
  - WHEEZING [None]
